FAERS Safety Report 9869650 (Version 1)
Quarter: 2014Q1

REPORT INFORMATION
  Report Type: Spontaneous
  Country: JP (occurrence: None)
  Receive Date: 20140131
  Receipt Date: 20140131
  Transmission Date: 20141002
  Serious: Yes (Death)
  Sender: FDA-Public Use
  Company Number: SYM-2014-15720

PATIENT
  Sex: 0

DRUGS (3)
  1. FLUOROURACIL [Suspect]
     Indication: METASTATIC GASTRIC CANCER
     Route: 040
  2. METHOTREXATE (METHOTREXATE) (METHOTREXATE) [Suspect]
     Indication: METASTATIC GASTRIC CANCER
     Route: 040
  3. LEUCOVORIN [Concomitant]

REACTIONS (1)
  - Death [None]
